FAERS Safety Report 4852885-2 (Version None)
Quarter: 2005Q4

REPORT INFORMATION
  Report Type: 
  Country: None (occurrence: None)
  Receive Date: 20051212
  Receipt Date: 20051128
  Transmission Date: 20060501
  Serious: Yes (Death, Hospitalization)
  Sender: FDA-Public Use
  Company Number: 9913150

PATIENT
  Age: 83 Year
  Sex: Female

DRUGS (3)
  1. AMLODIPINE [Suspect]
     Indication: HYPERTENSION
     Dosage: 5 MG (5 MG, 1 IN 1D), ORAL
     Route: 048
     Dates: start: 19980501
  2. AMIODARONE HCL [Concomitant]
  3. CLOXAZOLAM (CLOXAZOLAM) [Concomitant]

REACTIONS (4)
  - CARDIOVASCULAR DISORDER [None]
  - CEREBROVASCULAR ACCIDENT [None]
  - PARKINSON'S DISEASE [None]
  - PNEUMONIA ASPIRATION [None]
